FAERS Safety Report 15438855 (Version 7)
Quarter: 2020Q3

REPORT INFORMATION
  Report Type: Report from Study
  Country: US (occurrence: US)
  Receive Date: 20180928
  Receipt Date: 20200825
  Transmission Date: 20201102
  Serious: Yes (Hospitalization, Other)
  Sender: FDA-Public Use
  Company Number: US-INCYTE CORPORATION-2018IN008839

PATIENT

DRUGS (11)
  1. JAKAFI [Suspect]
     Active Substance: RUXOLITINIB
     Dosage: 10 MG, BID
     Route: 065
     Dates: start: 201807
  2. MULTIVITAMIN                       /07504101/ [Concomitant]
     Active Substance: VITAMINS
     Indication: PRODUCT USED FOR UNKNOWN INDICATION
     Dosage: UNK
     Route: 065
  3. JAKAFI [Suspect]
     Active Substance: RUXOLITINIB
     Dosage: 10 MILLIGRAM, BID
     Route: 048
  4. JAKAFI [Suspect]
     Active Substance: RUXOLITINIB
     Dosage: 15 MILLIGRAM, BID
     Route: 048
  5. JAKAFI [Suspect]
     Active Substance: RUXOLITINIB
     Dosage: 10 MG, BID
     Route: 048
     Dates: end: 20190123
  6. VITAMINS NOS [Concomitant]
     Active Substance: VITAMINS
     Indication: PRODUCT USED FOR UNKNOWN INDICATION
     Dosage: UNK
     Route: 065
  7. CALCIUM [Concomitant]
     Active Substance: CALCIUM
     Indication: PRODUCT USED FOR UNKNOWN INDICATION
     Dosage: AT TIMES
     Route: 065
  8. JAKAFI [Suspect]
     Active Substance: RUXOLITINIB
     Dosage: 15 MILLIGRAM, BID
     Route: 048
  9. JAKAFI [Suspect]
     Active Substance: RUXOLITINIB
     Dosage: 20 MILLIGRAM, BID
     Route: 048
  10. JAKAFI [Suspect]
     Active Substance: RUXOLITINIB
     Indication: MYELOFIBROSIS
     Dosage: 5 MG, BID
     Route: 048
     Dates: start: 20180502
  11. JAKAFI [Suspect]
     Active Substance: RUXOLITINIB
     Dosage: 10 MG, BID
     Route: 048

REACTIONS (21)
  - Cystitis [Unknown]
  - Kidney enlargement [Unknown]
  - Urinary tract infection [Unknown]
  - Depressed mood [Unknown]
  - Diaphragmatic spasm [Recovered/Resolved]
  - Discomfort [Recovered/Resolved]
  - Sneezing [Recovered/Resolved]
  - Sepsis [Unknown]
  - Platelet count decreased [Unknown]
  - Thirst [Not Recovered/Not Resolved]
  - Insomnia [Recovered/Resolved]
  - Haemoglobin abnormal [Recovered/Resolved]
  - Liver function test abnormal [Unknown]
  - Nausea [Unknown]
  - Kidney infection [Unknown]
  - Vomiting [Recovered/Resolved]
  - Illness [Unknown]
  - Back pain [Recovered/Resolved]
  - General physical health deterioration [Recovered/Resolved]
  - Product dose omission issue [Unknown]
  - Blood count abnormal [Not Recovered/Not Resolved]
